FAERS Safety Report 5078900-1 (Version None)
Quarter: 2006Q3

REPORT INFORMATION
  Report Type: 
  Country: None (occurrence: None)
  Receive Date: 20060809
  Receipt Date: 20060809
  Transmission Date: 20061208
  Serious: Yes (Life-Threatening, Hospitalization, Disabling)
  Sender: FDA-Public Use
  Company Number: None

PATIENT
  Age: 77 Year
  Sex: Female
  Weight: 70.3075 kg

DRUGS (6)
  1. LEVAQUIN [Suspect]
     Indication: PNEUMONIA BACTERIAL
     Dosage: 500 MG DAILY IV + TABLETS
     Route: 042
     Dates: start: 20060617, end: 20060621
  2. LEVAQUIN [Suspect]
     Indication: PNEUMONIA BACTERIAL
     Dosage: 500 MG DAILY IV + TABLETS
     Route: 042
     Dates: start: 20060621, end: 20060628
  3. VANCOMYCIN [Suspect]
     Dosage: I DON'T KNOW ONE TIME IV
     Route: 042
     Dates: start: 20060620
  4. OXYGEN [Concomitant]
  5. BENADRYL [Concomitant]
  6. CORTISONE [Concomitant]

REACTIONS (7)
  - ANXIETY [None]
  - ARTHRALGIA [None]
  - CONTRAINDICATION TO MEDICAL TREATMENT [None]
  - FEELING OF DESPAIR [None]
  - MYALGIA [None]
  - PAIN [None]
  - PAIN IN EXTREMITY [None]
